FAERS Safety Report 16843545 (Version 2)
Quarter: 2019Q3

REPORT INFORMATION
  Report Type: Spontaneous
  Country: US (occurrence: US)
  Receive Date: 20190924
  Receipt Date: 20190927
  Transmission Date: 20191005
  Serious: Yes (Hospitalization)
  Sender: FDA-Public Use
  Company Number: US-ACCORD-155084

PATIENT
  Age: 45 Year
  Sex: Female

DRUGS (6)
  1. ARIPIPRAZOLE. [Suspect]
     Active Substance: ARIPIPRAZOLE
     Indication: SCHIZOPHRENIA
     Dosage: MAXIMUM DOSES FOR AT LEAST 4-6?WEEKS
  2. QUETIAPINE. [Suspect]
     Active Substance: QUETIAPINE
     Indication: SCHIZOPHRENIA
     Dosage: MAXIMUM DOSES FOR AT LEAST 4-6?WEEKS
  3. CLOZAPINE. [Interacting]
     Active Substance: CLOZAPINE
     Indication: SCHIZOPHRENIA
     Dosage: BEING GRADUALLY TITRATED UP, GRADUALLY REDUCED TO 150 MG/DAY
  4. PERPHENAZINE. [Suspect]
     Active Substance: PERPHENAZINE
     Indication: SCHIZOPHRENIA
     Dosage: MAXIMUM DOSES FOR AT LEAST 4-6?WEEKS
  5. CIPROFLOXACIN. [Interacting]
     Active Substance: CIPROFLOXACIN
     Indication: URINARY TRACT INFECTION
     Dosage: X 2 WKS
  6. OLANZAPINE. [Suspect]
     Active Substance: OLANZAPINE
     Indication: SCHIZOPHRENIA
     Dosage: MAXIMUM DOSES FOR AT LEAST 4-6?WEEKS

REACTIONS (8)
  - Drug interaction [Unknown]
  - Fatigue [Recovered/Resolved]
  - Dizziness [Recovered/Resolved]
  - Urinary tract infection [Recovered/Resolved]
  - Sedation [Recovered/Resolved]
  - Salivary hypersecretion [Recovered/Resolved]
  - Vision blurred [Recovered/Resolved]
  - Treatment failure [Unknown]
